FAERS Safety Report 9938739 (Version 1)
Quarter: 2014Q1

REPORT INFORMATION
  Report Type: Spontaneous
  Country: US (occurrence: US)
  Receive Date: 20140303
  Receipt Date: 20140303
  Transmission Date: 20141002
  Serious: No
  Sender: FDA-Public Use
  Company Number: US-PFIZER INC-2014055543

PATIENT
  Age: 59 Year
  Sex: Female

DRUGS (11)
  1. AMPICILLIN [Suspect]
     Dosage: UNK
  2. CIPROFLOXACIN [Suspect]
     Dosage: UNK
  3. CODEINE [Suspect]
     Dosage: UNK
  4. ATARAX [Suspect]
     Dosage: UNK
  5. FLAGYL [Suspect]
     Dosage: UNK
  6. MACRODANTIN [Suspect]
     Dosage: UNK
  7. TETRACYCLINE HCL [Suspect]
     Dosage: UNK
  8. DARVON [Suspect]
     Dosage: UNK
  9. DALMANE [Suspect]
     Dosage: UNK
  10. DILAUDID [Suspect]
     Dosage: UNK
  11. DEMEROL [Suspect]
     Dosage: UNK

REACTIONS (1)
  - Drug hypersensitivity [Unknown]
